FAERS Safety Report 8581256-0 (Version None)
Quarter: 2012Q3

REPORT INFORMATION
  Report Type: 
  Country: None (occurrence: None)
  Receive Date: 20120809
  Receipt Date: 20120731
  Transmission Date: 20120928
  Serious: Yes (Hospitalization, Other)
  Sender: FDA-Public Use
  Company Number: US-SANOFI-AVENTIS-2012SA055846

PATIENT
  Age: 68 Year
  Sex: Female
  Weight: 85 kg

DRUGS (7)
  1. DOCETAXEL [Suspect]
     Dosage: VIAL
     Route: 042
     Dates: start: 20090804, end: 20090903
  2. PROTONIX [Concomitant]
  3. TRASTUZUMAB [Suspect]
     Dosage: VIAL
     Route: 042
     Dates: start: 20090804, end: 20090903
  4. ALISKIREN [Concomitant]
  5. ATORVASTATIN CALCIUM [Concomitant]
  6. DICLOFENAC [Concomitant]
  7. CARBOPLATIN [Suspect]
     Dosage: VIAL
     Route: 042
     Dates: start: 20090804, end: 20090903

REACTIONS (2)
  - CARBON MONOXIDE DIFFUSING CAPACITY DECREASED [None]
  - FEBRILE NEUTROPENIA [None]
